FAERS Safety Report 22208276 (Version 4)
Quarter: 2023Q2

REPORT INFORMATION
  Report Type: Spontaneous
  Country: US (occurrence: US)
  Receive Date: 20230413
  Receipt Date: 20230516
  Transmission Date: 20230721
  Serious: Yes (Other)
  Sender: FDA-Public Use
  Company Number: US-JNJFOC-20230406551

PATIENT
  Age: 66 Year
  Sex: Female

DRUGS (4)
  1. XARELTO [Suspect]
     Active Substance: RIVAROXABAN
     Indication: Thrombosis
     Dosage: PRESCRIPTION NUMBER 6781293
     Route: 048
     Dates: start: 20230402
  2. VITAMIN E [Concomitant]
     Active Substance: .ALPHA.-TOCOPHEROL
     Indication: Product used for unknown indication
  3. ASPIRIN [Concomitant]
     Active Substance: ASPIRIN
     Indication: Product used for unknown indication
  4. ZOFRAN [Concomitant]
     Active Substance: ONDANSETRON HYDROCHLORIDE
     Indication: Product used for unknown indication
     Route: 048

REACTIONS (15)
  - Delirium [Unknown]
  - Drug ineffective [Unknown]
  - Hypertension [Unknown]
  - Decreased appetite [Unknown]
  - Fatigue [Unknown]
  - Feeling abnormal [Unknown]
  - Back pain [Unknown]
  - Pyrexia [Unknown]
  - Erythema [Unknown]
  - Dizziness [Unknown]
  - Malaise [Unknown]
  - Blood glucose increased [Unknown]
  - Weight decreased [Unknown]
  - Blood cholesterol increased [Unknown]
  - Hypersensitivity [Recovered/Resolved]

NARRATIVE: CASE EVENT DATE: 20230401
